FAERS Safety Report 5590890-1 (Version None)
Quarter: 2007Q4

REPORT INFORMATION
  Report Type: 
  Country: None (occurrence: None)
  Receive Date: 20071212
  Receipt Date: 20070515
  Transmission Date: 20080405
  Serious: Yes (Death, Hospitalization)
  Sender: FDA-Public Use
  Company Number: USA-2007-0026471

PATIENT
  Age: 49 Year
  Sex: Female
  Weight: 94.3 kg

DRUGS (5)
  1. OXYCONTIN [Suspect]
     Indication: BACK PAIN
     Dosage: 40 MG, BID, ORAL
     Route: 048
     Dates: start: 20050101
  2. TRAZODONE HCL [Suspect]
     Indication: DEPRESSION
     Dosage: 200 MG, HS, ORAL
     Route: 048
  3. ROBAXIN [Suspect]
     Indication: MUSCLE SPASMS
     Dosage: 750 MG, TID, ORAL
     Route: 048
  4. OXYIR [Concomitant]
  5. NEURONTIN [Concomitant]

REACTIONS (1)
  - MULTIPLE DRUG OVERDOSE INTENTIONAL [None]
